FAERS Safety Report 6146016-9 (Version None)
Quarter: 2009Q2

REPORT INFORMATION
  Report Type: 
  Country: None (occurrence: None)
  Receive Date: 20090403
  Receipt Date: 20090326
  Transmission Date: 20091009
  Serious: Yes (Other)
  Sender: FDA-Public Use
  Company Number: ADE2009-0509

PATIENT
  Age: 57 Year
  Sex: Male
  Weight: 86.2 kg

DRUGS (1)
  1. SIMVASTATIN [Suspect]
     Indication: TYPE V HYPERLIPIDAEMIA

REACTIONS (3)
  - DYSPNOEA [None]
  - FATIGUE [None]
  - MYOPATHY [None]
